FAERS Safety Report 10233507 (Version 2)
Quarter: 2014Q3

REPORT INFORMATION
  Report Type: Spontaneous
  Country: IT (occurrence: IT)
  Receive Date: 20140612
  Receipt Date: 20140929
  Transmission Date: 20150326
  Serious: Yes (Hospitalization, Other)
  Sender: FDA-Public Use
  Company Number: IT-TEVA-486449ISR

PATIENT
  Age: 0 Year
  Sex: Female
  Weight: 2 kg

DRUGS (1)
  1. PAROXETINE [Suspect]
     Active Substance: PAROXETINE\PAROXETINE HYDROCHLORIDE
     Route: 064

REACTIONS (3)
  - Foetal exposure during pregnancy [Unknown]
  - Hyponatraemia [Recovered/Resolved]
  - Bradycardia foetal [Unknown]

NARRATIVE: CASE EVENT DATE: 201404
